FAERS Safety Report 6602875-4 (Version None)
Quarter: 2010Q1

REPORT INFORMATION
  Report Type: 
  Country: None (occurrence: None)
  Receive Date: 20100226
  Receipt Date: 20100211
  Transmission Date: 20100710
  Serious: Yes (Death, Hospitalization, Other)
  Sender: FDA-Public Use
  Company Number: ES-ELI_LILLY_AND_COMPANY-ES201002003030

PATIENT
  Age: 70 Year
  Sex: Female

DRUGS (1)
  1. FORTEO [Suspect]
     Indication: OSTEOPOROSIS
     Dosage: 20 UG, DAILY (1/D)
     Route: 058
     Dates: start: 20090601

REACTIONS (8)
  - BLOOD GLUCOSE INCREASED [None]
  - BRONCHITIS [None]
  - CARDIOMYOPATHY [None]
  - DEATH [None]
  - DIARRHOEA [None]
  - FALL [None]
  - HAEMATOMA [None]
  - LOSS OF CONSCIOUSNESS [None]
